FAERS Safety Report 25663827 (Version 2)
Quarter: 2025Q3

REPORT INFORMATION
  Report Type: Report from Study
  Country: US (occurrence: US)
  Receive Date: 20250811
  Receipt Date: 20250827
  Transmission Date: 20251021
  Serious: Yes (Other)
  Sender: ROCHE
  Company Number: US-ROCHE-10000176654

PATIENT
  Age: 64 Year
  Sex: Female
  Weight: 41.64 kg

DRUGS (4)
  1. AVASTIN [Suspect]
     Active Substance: BEVACIZUMAB
     Indication: Metastases to liver
     Dosage: DATE OF SERVICE: 03-FEB-2025, 17-FEB-2025, 28-APR-2025, 23-JUN-2025, VIAL, 200 MG
     Route: 042
  2. AVASTIN [Suspect]
     Active Substance: BEVACIZUMAB
     Indication: Colon cancer
     Dosage: DATE OF SERVICE: 31-MAR-2025, 12-MAY-2025, 27-MAY-2025, 09-JUN-2025, 07-JUL-2025, 18-AUG-2025
     Route: 042
  3. IRINOTECAN [Concomitant]
     Active Substance: IRINOTECAN
  4. SODIUM CHLORIDE [Concomitant]
     Active Substance: SODIUM CHLORIDE
     Route: 042

REACTIONS (14)
  - Blood creatinine decreased [Unknown]
  - Haematocrit decreased [Unknown]
  - Haemoglobin decreased [Unknown]
  - Platelet count increased [Unknown]
  - Neuropathy peripheral [Unknown]
  - Iron deficiency anaemia [Unknown]
  - Leukopenia [Unknown]
  - Oedema peripheral [Unknown]
  - Secondary hypertension [Unknown]
  - Vomiting [Unknown]
  - Weight decreased [Unknown]
  - Tumour pain [Unknown]
  - Metastases to lung [Unknown]
  - Insomnia [Unknown]
